FAERS Safety Report 7505708-7 (Version None)
Quarter: 2011Q2

REPORT INFORMATION
  Report Type: 
  Country: None (occurrence: None)
  Receive Date: 20110526
  Receipt Date: 20110517
  Transmission Date: 20111010
  Serious: Yes (Hospitalization)
  Sender: FDA-Public Use
  Company Number: AT-PFIZER INC-2011100636

PATIENT
  Age: 42 Year
  Sex: Male
  Weight: 73 kg

DRUGS (8)
  1. POTASSIUM CHLORIDE [Concomitant]
     Dosage: 1 TABLET, 1X/DAY
     Route: 048
     Dates: start: 20110511, end: 20110516
  2. FLUOROURACIL [Suspect]
     Dosage: 2400 MG/M2, ON D1-2, EVERY 2 WEEKS
     Route: 042
     Dates: start: 20110316, end: 20110428
  3. XANOR [Concomitant]
     Dosage: 0.125 MG, 1X/DAY
     Route: 048
     Dates: start: 20110510, end: 20110516
  4. BEVACIZUMAB [Suspect]
     Indication: COLORECTAL CANCER METASTATIC
     Dosage: 5 MG/KG, ON D1, EVERY 2 WEEKS
     Route: 042
     Dates: start: 20110316, end: 20110427
  5. FLUOROURACIL [Suspect]
     Indication: COLORECTAL CANCER METASTATIC
     Dosage: 400 MG/M2, ON D1, EVERY 2 WEEKS
     Route: 040
     Dates: start: 20110316
  6. IRINOTECAN HCL [Suspect]
     Indication: COLORECTAL CANCER METASTATIC
     Dosage: 180 MG/M2, ON D1, EVERY 2 WEEKS
     Route: 042
     Dates: start: 20110316, end: 20110427
  7. LEUCOVORIN CALCIUM [Suspect]
     Indication: COLORECTAL CANCER METASTATIC
     Dosage: 400 MG/M2, ON D1, EVERY 2 WEEKS
     Route: 042
     Dates: start: 20110316, end: 20110427
  8. PANTOLOC [Concomitant]
     Dosage: 40 MG, 1X/DAY
     Route: 048
     Dates: start: 20110307

REACTIONS (4)
  - ASTHENIA [None]
  - DYSPNOEA [None]
  - PYREXIA [None]
  - TACHYCARDIA [None]
